FAERS Safety Report 7000072-4 (Version None)
Quarter: 2010Q3

REPORT INFORMATION
  Report Type: 
  Country: None (occurrence: None)
  Receive Date: 20100920
  Receipt Date: 20100611
  Transmission Date: 20110219
  Serious: Yes (Other)
  Sender: FDA-Public Use
  Company Number: US-ASTRAZENECA-2010SE27398

PATIENT
  Age: 47 Year
  Sex: Male
  Weight: 135 kg

DRUGS (9)
  1. SEROQUEL [Suspect]
     Indication: SLEEP DISORDER
     Route: 048
     Dates: start: 20100101
  2. CHANTIX [Suspect]
     Indication: SMOKING CESSATION THERAPY
     Route: 048
     Dates: start: 20100401
  3. BENICAR HCT [Concomitant]
     Indication: HYPERTENSION
     Dosage: 40/25 MG DAILY
     Route: 048
  4. TRAZODONE HCL [Concomitant]
     Indication: SCHIZOAFFECTIVE DISORDER BIPOLAR TYPE
  5. GEODON [Concomitant]
     Indication: SCHIZOAFFECTIVE DISORDER BIPOLAR TYPE
     Dosage: 80 MG TWO TIMES IN A DAY AND 40 MG AT NIGHT
     Route: 048
  6. ALLEGRA [Concomitant]
     Indication: HYPERSENSITIVITY
     Route: 048
  7. NEXIUM [Concomitant]
     Indication: GASTROOESOPHAGEAL REFLUX DISEASE
     Route: 048
  8. NEURONTIN [Concomitant]
     Indication: PAIN IN EXTREMITY
     Route: 048
  9. NEURONTIN [Concomitant]
     Route: 048

REACTIONS (1)
  - WEIGHT INCREASED [None]
